FAERS Safety Report 19666576 (Version 14)
Quarter: 2022Q4

REPORT INFORMATION
  Report Type: Spontaneous
  Country: JP (occurrence: JP)
  Receive Date: 20210806
  Receipt Date: 20221213
  Transmission Date: 20230112
  Serious: Yes (Hospitalization, Other)
  Sender: FDA-Public Use
  Company Number: JP-BRISTOL-MYERS SQUIBB COMPANY-BMS-2021-076894

PATIENT
  Age: 8 Decade
  Sex: Male
  Weight: 50 kg

DRUGS (7)
  1. YERVOY [Suspect]
     Active Substance: IPILIMUMAB
     Indication: Non-small cell lung cancer recurrent
     Route: 041
     Dates: start: 202105
  2. OPDIVO [Suspect]
     Active Substance: NIVOLUMAB
     Indication: Non-small cell lung cancer recurrent
     Dates: start: 202105
  3. OPDIVO [Suspect]
     Active Substance: NIVOLUMAB
     Dates: start: 202106
  4. OPDIVO [Suspect]
     Active Substance: NIVOLUMAB
     Dates: start: 202107
  5. CARBOPLATIN [Suspect]
     Active Substance: CARBOPLATIN
     Indication: Non-small cell lung cancer recurrent
     Dates: start: 202105
  6. CARBOPLATIN [Suspect]
     Active Substance: CARBOPLATIN
     Dates: start: 202106
  7. PACLITAXEL [Suspect]
     Active Substance: PACLITAXEL
     Indication: Non-small cell lung cancer recurrent
     Dates: start: 202105

REACTIONS (7)
  - Haematochezia [Recovering/Resolving]
  - Diarrhoea [Recovering/Resolving]
  - Neutrophil count decreased [Unknown]
  - Decreased appetite [Recovering/Resolving]
  - White blood cell count decreased [Unknown]
  - Anaemia [Unknown]
  - Platelet count decreased [Unknown]

NARRATIVE: CASE EVENT DATE: 20210601
